FAERS Safety Report 21116430 (Version 3)
Quarter: 2022Q3

REPORT INFORMATION
  Report Type: Other
  Country: CA (occurrence: None)
  Receive Date: 20220722
  Receipt Date: 20220823
  Transmission Date: 20221026
  Serious: No
  Sender: FDA-Public Use
  Company Number: CA-ROCHE-3143810

PATIENT
  Age: 46 Year
  Sex: Female

DRUGS (4)
  1. OCREVUS [Suspect]
     Active Substance: OCRELIZUMAB
     Indication: Relapsing-remitting multiple sclerosis
     Dosage: THEN 600 MG EVERY 6 MONTH?CONCENTRATE FOR INTRAVENOUS INFUSION
     Route: 042
     Dates: start: 20190513
  2. TYLENOL [Concomitant]
     Active Substance: ACETAMINOPHEN
  3. ADVIL [Concomitant]
     Active Substance: IBUPROFEN
  4. PREGABALIN [Concomitant]
     Active Substance: PREGABALIN

REACTIONS (1)
  - SARS-CoV-2 test positive [Not Recovered/Not Resolved]

NARRATIVE: CASE EVENT DATE: 20220716
